FAERS Safety Report 7291266-1 (Version None)
Quarter: 2011Q1

REPORT INFORMATION
  Report Type: 
  Country: None (occurrence: None)
  Receive Date: 20110214
  Receipt Date: 20110204
  Transmission Date: 20110831
  Serious: Yes (Death)
  Sender: FDA-Public Use
  Company Number: BR-GENZYME-CERZ-1001844

PATIENT

DRUGS (2)
  1. MIGLUSTAT [Suspect]
     Indication: GAUCHER'S DISEASE
     Dosage: UNK UNK, UNK
     Route: 048
  2. CEREZYME [Suspect]
     Indication: GAUCHER'S DISEASE
     Dosage: UNK UNK, UNK
     Route: 042
     Dates: start: 20010501

REACTIONS (1)
  - BRAIN NEOPLASM [None]
